FAERS Safety Report 24965970 (Version 2)
Quarter: 2025Q1

REPORT INFORMATION
  Report Type: Spontaneous
  Country: MX (occurrence: MX)
  Receive Date: 20250213
  Receipt Date: 20250220
  Transmission Date: 20250409
  Serious: Yes (Hospitalization)
  Sender: SANOFI AVENTIS
  Company Number: MX-SA-2025SA042749

PATIENT
  Age: 14 Year
  Sex: Female

DRUGS (4)
  1. TOUJEO [Suspect]
     Active Substance: INSULIN GLARGINE
     Indication: Type 1 diabetes mellitus
     Dosage: 33 IU, QD
     Route: 058
     Dates: start: 202412
  2. TOUJEO [Suspect]
     Active Substance: INSULIN GLARGINE
     Dosage: 18 IU, QD
     Route: 058
     Dates: end: 20250103
  3. TOUJEO [Suspect]
     Active Substance: INSULIN GLARGINE
     Dosage: 13 IU, QD, START DATE: 30-JAN-2025
     Route: 058
     Dates: start: 20250103
  4. INSULIN LISPRO [Concomitant]
     Active Substance: INSULIN LISPRO

REACTIONS (6)
  - Cervicogenic headache [Not Recovered/Not Resolved]
  - Vomiting [Not Recovered/Not Resolved]
  - Nausea [Recovered/Resolved with Sequelae]
  - Dizziness [Not Recovered/Not Resolved]
  - Somnolence [Not Recovered/Not Resolved]
  - Blood glucose fluctuation [Not Recovered/Not Resolved]

NARRATIVE: CASE EVENT DATE: 20250112
